FAERS Safety Report 21856346 (Version 1)
Quarter: 2023Q1

REPORT INFORMATION
  Report Type: Report from Study
  Country: US (occurrence: US)
  Receive Date: 20230112
  Receipt Date: 20230112
  Transmission Date: 20230417
  Serious: No
  Sender: FDA-Public Use
  Company Number: US-ABBVIE-4234232

PATIENT
  Age: 73 Year
  Sex: Male

DRUGS (1)
  1. SKYRIZI [Suspect]
     Active Substance: RISANKIZUMAB-RZAA
     Indication: Psoriasis
     Dosage: WEEK 0?RUNNY NOSE EVENT ONSET DATE DEC 2022
     Route: 058
     Dates: start: 20221208

REACTIONS (2)
  - Fatigue [Unknown]
  - Rhinorrhoea [Unknown]

NARRATIVE: CASE EVENT DATE: 20221209
